FAERS Safety Report 7079213-9 (Version None)
Quarter: 2010Q4

REPORT INFORMATION
  Report Type: 
  Country: None (occurrence: None)
  Receive Date: 20101102
  Receipt Date: 20101025
  Transmission Date: 20110411
  Serious: Yes (Other)
  Sender: FDA-Public Use
  Company Number: US-ROCHE-737057

PATIENT
  Sex: Female

DRUGS (1)
  1. XELODA [Suspect]
     Dosage: DATES OF USE: 2 DAYS
     Route: 048

REACTIONS (1)
  - PERICARDITIS [None]
